FAERS Safety Report 4370672-9 (Version None)
Quarter: 2004Q2

REPORT INFORMATION
  Report Type: 
  Country: None (occurrence: None)
  Receive Date: 20040526
  Receipt Date: 20040524
  Transmission Date: 20050107
  Serious: Yes (Hospitalization)
  Sender: FDA-Public Use
  Company Number: FRWYE776324MAY04

PATIENT
  Age: 70 Year
  Sex: Female

DRUGS (3)
  1. EFFEXOR [Suspect]
     Indication: DEPRESSION
     Dosage: 1 DOSE 1X PER 1 DAY
     Route: 048
  2. DIAMICRON (GLICLAZIDE) [Concomitant]
  3. XANAX [Concomitant]

REACTIONS (4)
  - AGITATION [None]
  - DELIRIUM [None]
  - FALL [None]
  - HALLUCINATION, VISUAL [None]
